FAERS Safety Report 5382631-8 (Version None)
Quarter: 2007Q3

REPORT INFORMATION
  Report Type: 
  Country: None (occurrence: None)
  Receive Date: 20070710
  Receipt Date: 20070705
  Transmission Date: 20080115
  Serious: Yes (Life-Threatening)
  Sender: FDA-Public Use
  Company Number: CN-BRISTOL-MYERS SQUIBB COMPANY-13837182

PATIENT
  Sex: Male

DRUGS (1)
  1. VUMON [Suspect]
     Indication: NEOPLASM
     Route: 051

REACTIONS (1)
  - COMA [None]
